FAERS Safety Report 4845413-9 (Version None)
Quarter: 2005Q4

REPORT INFORMATION
  Report Type: 
  Country: None (occurrence: None)
  Receive Date: 20051125
  Receipt Date: 20051114
  Transmission Date: 20060501
  Serious: Yes (Hospitalization, Other)
  Sender: FDA-Public Use
  Company Number: 2005156706

PATIENT
  Age: 47 Year
  Sex: Male

DRUGS (4)
  1. ZELDOX (CAPSULES) (ZIPRASIDONE) [Suspect]
     Indication: SCHIZOPHRENIA
     Dosage: 120 MG, ORAL
     Route: 048
     Dates: start: 20050301, end: 20050309
  2. DIAZEPAM [Suspect]
     Indication: ILL-DEFINED DISORDER
     Dates: start: 20050419, end: 20050609
  3. HALDOL [Suspect]
     Indication: ILL-DEFINED DISORDER
     Dosage: 10 MG, ORAL
     Route: 048
     Dates: start: 20050418, end: 20050509
  4. GLYBURIDE [Concomitant]

REACTIONS (1)
  - BLOOD CREATINE PHOSPHOKINASE INCREASED [None]
